FAERS Safety Report 5717458-8 (Version None)
Quarter: 2008Q2

REPORT INFORMATION
  Report Type: 
  Country: None (occurrence: None)
  Receive Date: 20080424
  Receipt Date: 20080424
  Transmission Date: 20081010
  Serious: Yes (Hospitalization)
  Sender: FDA-Public Use
  Company Number: None

PATIENT
  Age: 65 Year
  Sex: Male
  Weight: 100.24 kg

DRUGS (2)
  1. SIMVASTATIN [Suspect]
     Indication: HYPERLIPIDAEMIA
     Dates: start: 19970402, end: 20070402
  2. DIVALPROEX [Suspect]
     Indication: MYOCLONUS
     Dates: start: 20030206

REACTIONS (2)
  - PANCREATITIS ACUTE [None]
  - TREATMENT NONCOMPLIANCE [None]
